FAERS Safety Report 20833810 (Version 2)
Quarter: 2024Q3

REPORT INFORMATION
  Report Type: Spontaneous
  Country: ES (occurrence: ES)
  Receive Date: 20220516
  Receipt Date: 20240726
  Transmission Date: 20241016
  Serious: Yes (Life-Threatening, Hospitalization)
  Sender: MYLAN
  Company Number: None

PATIENT
  Age: 62 Year
  Sex: Male
  Weight: 80 kg

DRUGS (2)
  1. CELEBREX [Suspect]
     Active Substance: CELECOXIB
     Indication: Arthralgia
     Dosage: 200 MILLIGRAM, QD, 200 MG, 1X/DAY
     Route: 065
     Dates: start: 20220329, end: 20220410
  2. METAMIZOLE MAGNESIUM [Suspect]
     Active Substance: METAMIZOLE MAGNESIUM
     Indication: Arthralgia
     Dosage: 575 MILLIGRAM, TID, 575 MG, 3X/DAY
     Route: 048
     Dates: start: 20220407, end: 20220417

REACTIONS (4)
  - Dyspnoea [Recovering/Resolving]
  - Angioedema [Recovering/Resolving]
  - Agranulocytosis [Recovered/Resolved with Sequelae]
  - Sepsis [Recovered/Resolved with Sequelae]

NARRATIVE: CASE EVENT DATE: 20220413
